FAERS Safety Report 10724897 (Version 2)
Quarter: 2015Q1

REPORT INFORMATION
  Report Type: Spontaneous
  Country: US (occurrence: US)
  Receive Date: 20150120
  Receipt Date: 20150224
  Transmission Date: 20150721
  Serious: No
  Sender: FDA-Public Use
  Company Number: US-LUNDBECK-DKLU1107118

PATIENT
  Age: 4 Year
  Sex: Female
  Weight: 16 kg

DRUGS (5)
  1. SABRIL [Interacting]
     Active Substance: VIGABATRIN
     Route: 048
     Dates: start: 20141114, end: 20141212
  2. AFINITOR [Suspect]
     Active Substance: EVEROLIMUS
     Indication: PRODUCT USED FOR UNKNOWN INDICATION
     Route: 065
  3. SABRIL [Interacting]
     Active Substance: VIGABATRIN
     Route: 048
     Dates: start: 20141114, end: 20141212
  4. SABRIL [Suspect]
     Active Substance: VIGABATRIN
     Indication: COMPLEX PARTIAL SEIZURES
     Route: 048
     Dates: start: 201411, end: 20141113
  5. SABRIL [Interacting]
     Active Substance: VIGABATRIN
     Route: 048
     Dates: start: 201411, end: 20141113

REACTIONS (8)
  - Drug interaction [Unknown]
  - Mood altered [Not Recovered/Not Resolved]
  - Drug ineffective [Unknown]
  - Abnormal behaviour [Recovering/Resolving]
  - Head banging [Not Recovered/Not Resolved]
  - Depressed mood [Not Recovered/Not Resolved]
  - Bruxism [Not Recovered/Not Resolved]
  - Aggression [Unknown]

NARRATIVE: CASE EVENT DATE: 2014
